FAERS Safety Report 4541915-3 (Version None)
Quarter: 2004Q4

REPORT INFORMATION
  Report Type: 
  Country: None (occurrence: None)
  Receive Date: 20041227
  Receipt Date: 20041215
  Transmission Date: 20050328
  Serious: Yes (Death, Life-Threatening, Hospitalization)
  Sender: FDA-Public Use
  Company Number: PHRM2004FR03683

PATIENT
  Age: 76 Year
  Sex: Female

DRUGS (3)
  1. VISUDYNE [Suspect]
     Dates: start: 20041115, end: 20041115
  2. MYDRIACIL EYE DROPS [Concomitant]
  3. ANTIHYPERTENSIVE DRUGS [Concomitant]

REACTIONS (5)
  - BRONCHOSPASM [None]
  - CARDIAC ARREST [None]
  - FALL [None]
  - LOSS OF CONSCIOUSNESS [None]
  - MALAISE [None]
